FAERS Safety Report 9879163 (Version 2)
Quarter: 2014Q1

REPORT INFORMATION
  Report Type: Spontaneous
  Country: US (occurrence: US)
  Receive Date: 20140206
  Receipt Date: 20140206
  Transmission Date: 20141002
  Serious: No
  Sender: FDA-Public Use
  Company Number: US-ALLERGAN-1313818US

PATIENT
  Sex: Female

DRUGS (3)
  1. BOTOX COSMETIC [Suspect]
     Indication: SKIN WRINKLING
     Dosage: 12 UNITS, SINGLE
     Route: 030
     Dates: start: 20130909, end: 20130909
  2. BOTOX COSMETIC [Suspect]
     Dosage: 12 UNITS, SINGLE
     Route: 030
     Dates: start: 20130909, end: 20130909
  3. BOTOX COSMETIC [Suspect]
     Dosage: 20 UNITS, SINGLE
     Route: 030
     Dates: start: 20130709, end: 20130709

REACTIONS (5)
  - Influenza like illness [Recovered/Resolved]
  - Wrong technique in drug usage process [Unknown]
  - Nausea [Recovered/Resolved]
  - Vomiting [Recovered/Resolved]
  - Therapeutic response decreased [Unknown]
